FAERS Safety Report 7526853-6 (Version None)
Quarter: 2011Q2

REPORT INFORMATION
  Report Type: 
  Country: None (occurrence: None)
  Receive Date: 20110606
  Receipt Date: 20110524
  Transmission Date: 20111010
  Serious: Yes (Other)
  Sender: FDA-Public Use
  Company Number: US-BAYER-200927526NA

PATIENT
  Age: 64 Year
  Sex: Male

DRUGS (22)
  1. UNSPECIFIED GADOLINIUM BASED CONTRAST AGENT [Suspect]
     Indication: ANGIOGRAM
     Dates: start: 20040226, end: 20040226
  2. PROHANCE [Suspect]
     Indication: PRODUCT USED FOR UNKNOWN INDICATION
  3. HYDROCODONE BITARTRATE AND ACETAMINOPHEN [Concomitant]
     Indication: PAIN
  4. UNSPECIFIED GADOLINIUM BASED CONTRAST AGENT [Suspect]
     Indication: NUCLEAR MAGNETIC RESONANCE IMAGING
     Dates: start: 19990622, end: 19990622
  5. WARFARIN SODIUM [Concomitant]
     Indication: ANTICOAGULANT THERAPY
  6. DIPHENHYDRAMINE HCL [Concomitant]
     Indication: GASTROINTESTINAL STOMA COMPLICATION
  7. PROMETHAZINE [Concomitant]
     Indication: GASTROINTESTINAL STOMA COMPLICATION
     Route: 040
  8. UNSPECIFIED GADOLINIUM BASED CONTRAST AGENT [Suspect]
     Dates: start: 20040917, end: 20040917
  9. MAGNEVIST [Suspect]
     Indication: NUCLEAR MAGNETIC RESONANCE IMAGING
  10. UNSPECIFIED GADOLINIUM BASED CONTRAST AGENT [Suspect]
     Indication: COMPUTERISED TOMOGRAM ABDOMEN
     Dates: start: 20001109, end: 20001109
  11. OPTIMARK [Suspect]
     Indication: PRODUCT USED FOR UNKNOWN INDICATION
  12. SULFASALAZINE [Concomitant]
     Indication: CROHN'S DISEASE
  13. GABAPENTIN [Concomitant]
  14. ADVAIR DISKUS 100/50 [Concomitant]
     Indication: RESPIRATORY DISORDER
  15. VITAMINS [Concomitant]
  16. PREVACID [Concomitant]
     Indication: GASTROOESOPHAGEAL REFLUX DISEASE
  17. AMBIEN [Concomitant]
  18. OMNISCAN [Suspect]
     Indication: ANGIOGRAM
     Dates: start: 20040927, end: 20040927
  19. MULTIHANCE [Suspect]
     Indication: PRODUCT USED FOR UNKNOWN INDICATION
  20. FLUCONAZOLE [Concomitant]
     Indication: INFECTION PROPHYLAXIS
  21. EPOGEN [Concomitant]
  22. IRON SUPPLEMENT [Concomitant]

REACTIONS (10)
  - SKIN TIGHTNESS [None]
  - SKIN INDURATION [None]
  - PAIN IN EXTREMITY [None]
  - FIBROSIS [None]
  - SKIN FIBROSIS [None]
  - WOUND [None]
  - GENERAL PHYSICAL HEALTH DETERIORATION [None]
  - NEPHROGENIC SYSTEMIC FIBROSIS [None]
  - DYSSTASIA [None]
  - GAIT DISTURBANCE [None]
